FAERS Safety Report 8122238-2 (Version None)
Quarter: 2012Q1

REPORT INFORMATION
  Report Type: 
  Country: None (occurrence: None)
  Receive Date: 20120208
  Receipt Date: 20120125
  Transmission Date: 20120608
  Serious: Yes (Other)
  Sender: FDA-Public Use
  Company Number: US-ROCHE-788387

PATIENT
  Sex: Male
  Weight: 81.72 kg

DRUGS (2)
  1. ACCUTANE [Suspect]
     Dates: start: 19850101, end: 19860101
  2. ACCUTANE [Suspect]
     Indication: ACNE
     Route: 065
     Dates: start: 19840101, end: 19850101

REACTIONS (12)
  - CROHN'S DISEASE [None]
  - ILEUS [None]
  - OSTEOPENIA [None]
  - EMOTIONAL DISTRESS [None]
  - DEPRESSION [None]
  - RECTAL ABSCESS [None]
  - INFLAMMATORY BOWEL DISEASE [None]
  - INTESTINAL HAEMORRHAGE [None]
  - IRITIS [None]
  - ANKYLOSING SPONDYLITIS [None]
  - HAEMOGLOBIN DECREASED [None]
  - UVEITIS [None]
